FAERS Safety Report 5362926-4 (Version None)
Quarter: 2007Q2

REPORT INFORMATION
  Report Type: 
  Country: None (occurrence: None)
  Receive Date: 20070614
  Receipt Date: 20061220
  Transmission Date: 20071010
  Serious: Yes (Hospitalization)
  Sender: FDA-Public Use
  Company Number: MEDI-0005237

PATIENT
  Age: 12 Month
  Sex: Male
  Weight: 8 kg

DRUGS (6)
  1. SYNAGIS [Suspect]
     Indication: BRONCHOPULMONARY DYSPLASIA
     Dosage: 122 MG, INTRAMUSCULAR
     Route: 030
     Dates: start: 20061212, end: 20061212
  2. BUDICORT (BUDESONIDE) [Concomitant]
  3. VENTOLIN [Concomitant]
  4. AEROVENT (IPRATROPIUM BROMIDE) [Concomitant]
  5. POLIVIT (ASCORBIC ACID, PYRIDOXINE HYDROCHLORIDE, THIAMINE HYDROCHLORI [Concomitant]
  6. FERRIPEL (FOLIC ACID, SACCARATED IRON OXIDE) [Concomitant]

REACTIONS (2)
  - APATHY [None]
  - VOMITING [None]
